FAERS Safety Report 15068868 (Version 1)
Quarter: 2018Q2

REPORT INFORMATION
  Report Type: Report from Study
  Country: FR (occurrence: FR)
  Receive Date: 20180626
  Receipt Date: 20180626
  Transmission Date: 20180711
  Serious: Yes (Other)
  Sender: FDA-Public Use
  Company Number: FR-JNJFOC-20120400402

PATIENT
  Age: 25 Year
  Sex: Female

DRUGS (24)
  1. ALUVIA [Suspect]
     Active Substance: LOPINAVIR\RITONAVIR
     Indication: PERSISTENT GENERALISED LYMPHADENOPATHY
     Route: 048
     Dates: start: 20120220, end: 20120524
  2. NORVIR [Suspect]
     Active Substance: RITONAVIR
     Indication: ACUTE HIV INFECTION
     Route: 048
     Dates: start: 20100713, end: 20111108
  3. DARUNAVIR [Suspect]
     Active Substance: DARUNAVIR
     Indication: HIV INFECTION
     Route: 048
     Dates: start: 20100713, end: 20111108
  4. EPZICOM [Suspect]
     Active Substance: ABACAVIR SULFATE\LAMIVUDINE
     Indication: PERSISTENT GENERALISED LYMPHADENOPATHY
     Route: 048
     Dates: start: 20120220, end: 20120319
  5. SELZENTRY [Suspect]
     Active Substance: MARAVIROC
     Indication: PERSISTENT GENERALISED LYMPHADENOPATHY
     Route: 048
     Dates: start: 20100713, end: 20111108
  6. ALUVIA [Suspect]
     Active Substance: LOPINAVIR\RITONAVIR
     Indication: ACUTE HIV INFECTION
     Route: 048
     Dates: start: 20120220, end: 20120524
  7. CELSENTRI [Suspect]
     Active Substance: MARAVIROC
     Indication: ACUTE HIV INFECTION
     Route: 048
     Dates: start: 20100713, end: 20111108
  8. EMTRICITABINE W/TENOFOVIR DISOPROXIL FUMARATE [Suspect]
     Active Substance: EMTRICITABINE\TENOFOVIR DISOPROXIL
     Indication: HIV INFECTION
     Dosage: DOSE 1. DOSE 200/245, STRENGTH: 200/245 MILLIGRAM ??DOSE 2. STRENGTH: 1 TABLET
     Route: 048
     Dates: start: 20120525
  9. DARUNAVIR [Suspect]
     Active Substance: DARUNAVIR
     Indication: PERSISTENT GENERALISED LYMPHADENOPATHY
     Route: 048
     Dates: start: 20100713, end: 20111108
  10. CELSENTRI [Suspect]
     Active Substance: MARAVIROC
     Indication: PERSISTENT GENERALISED LYMPHADENOPATHY
     Route: 048
     Dates: start: 20100713, end: 20111108
  11. EMTRICITABINE W/TENOFOVIR DISOPROXIL FUMARATE [Suspect]
     Active Substance: EMTRICITABINE\TENOFOVIR DISOPROXIL
     Indication: PERSISTENT GENERALISED LYMPHADENOPATHY
     Route: 048
     Dates: start: 20100713, end: 20111108
  12. EMTRICITABINE W/TENOFOVIR DISOPROXIL FUMARATE [Suspect]
     Active Substance: EMTRICITABINE\TENOFOVIR DISOPROXIL
     Indication: PERSISTENT GENERALISED LYMPHADENOPATHY
     Dosage: DOSE 1. DOSE 200/245, STRENGTH: 200/245 MILLIGRAM ??DOSE 2. STRENGTH: 1 TABLET
     Route: 048
     Dates: start: 20120525
  13. COMBIVIR [Suspect]
     Active Substance: LAMIVUDINE\ZIDOVUDINE
     Indication: PERSISTENT GENERALISED LYMPHADENOPATHY
     Route: 048
     Dates: start: 20120319, end: 20120524
  14. SELZENTRY [Suspect]
     Active Substance: MARAVIROC
     Indication: ACUTE HIV INFECTION
     Route: 048
     Dates: start: 20100713, end: 20111108
  15. KALETRA [Suspect]
     Active Substance: LOPINAVIR\RITONAVIR
     Indication: ACUTE HIV INFECTION
     Route: 048
     Dates: start: 20120220, end: 20120524
  16. NORVIR [Suspect]
     Active Substance: RITONAVIR
     Indication: PERSISTENT GENERALISED LYMPHADENOPATHY
     Route: 048
     Dates: start: 20100713, end: 20111108
  17. EMTRICITABINE W/TENOFOVIR DISOPROXIL FUMARATE [Suspect]
     Active Substance: EMTRICITABINE\TENOFOVIR DISOPROXIL
     Indication: HIV INFECTION
     Route: 048
     Dates: start: 20100713, end: 20111108
  18. EPZICOM [Suspect]
     Active Substance: ABACAVIR SULFATE\LAMIVUDINE
     Indication: ACUTE HIV INFECTION
     Route: 048
     Dates: start: 20120220, end: 20120319
  19. ISENTRESS [Suspect]
     Active Substance: RALTEGRAVIR POTASSIUM
     Indication: ACUTE HIV INFECTION
     Route: 048
     Dates: start: 20100713, end: 20111108
  20. ISENTRESS [Suspect]
     Active Substance: RALTEGRAVIR POTASSIUM
     Indication: PERSISTENT GENERALISED LYMPHADENOPATHY
     Route: 048
     Dates: start: 20100713, end: 20111108
  21. ISENTRESS [Suspect]
     Active Substance: RALTEGRAVIR POTASSIUM
     Indication: PERSISTENT GENERALISED LYMPHADENOPATHY
     Route: 048
     Dates: start: 20120524
  22. KALETRA [Suspect]
     Active Substance: LOPINAVIR\RITONAVIR
     Indication: PERSISTENT GENERALISED LYMPHADENOPATHY
     Route: 048
     Dates: start: 20120220, end: 20120524
  23. ISENTRESS [Suspect]
     Active Substance: RALTEGRAVIR POTASSIUM
     Indication: ACUTE HIV INFECTION
     Route: 048
     Dates: start: 20120524
  24. COMBIVIR [Suspect]
     Active Substance: LAMIVUDINE\ZIDOVUDINE
     Indication: HIV INFECTION
     Route: 048
     Dates: start: 20120319, end: 20120524

REACTIONS (5)
  - Exposure during pregnancy [Recovered/Resolved]
  - Caesarean section [Unknown]
  - Premature labour [Recovered/Resolved]
  - Cholestasis of pregnancy [Recovered/Resolved]
  - Toxoplasmosis [Unknown]

NARRATIVE: CASE EVENT DATE: 20120606
